FAERS Safety Report 5698782-4 (Version None)
Quarter: 2008Q2

REPORT INFORMATION
  Report Type: 
  Country: None (occurrence: None)
  Receive Date: 20080404
  Receipt Date: 20080327
  Transmission Date: 20081010
  Serious: Yes (Other)
  Sender: FDA-Public Use
  Company Number: 18846

PATIENT

DRUGS (6)
  1. VINCRISTINE [Suspect]
     Indication: ACUTE MYELOID LEUKAEMIA
  2. CYCLOPHOSPHAMIDE [Suspect]
     Indication: ACUTE MYELOID LEUKAEMIA
  3. CYTOSINE ARABINOSIDE. MFR: NOT SPECIFIED [Suspect]
     Indication: ACUTE MYELOID LEUKAEMIA
  4. DAUNORUBICIN HCL [Suspect]
     Indication: ACUTE MYELOID LEUKAEMIA
  5. METHOTREXATE [Suspect]
     Indication: ACUTE MYELOID LEUKAEMIA
  6. NEUPOGEN [Suspect]
     Indication: NEUTROPENIA

REACTIONS (4)
  - MONOCYTE COUNT DECREASED [None]
  - NO THERAPEUTIC RESPONSE [None]
  - SEPSIS [None]
  - STEM CELL TRANSPLANT [None]
